FAERS Safety Report 6193815-3 (Version None)
Quarter: 2009Q2

REPORT INFORMATION
  Report Type: 
  Country: None (occurrence: None)
  Receive Date: 20090514
  Receipt Date: 20090428
  Transmission Date: 20091009
  Serious: Yes (Other)
  Sender: FDA-Public Use
  Company Number: 20090139

PATIENT
  Age: 39 Year
  Sex: Female
  Weight: 94.8018 kg

DRUGS (1)
  1. DEXFERRUM [Suspect]
     Indication: IRON DEFICIENCY ANAEMIA
     Dosage: 2900MG ONCE, INTRAVENOUS
     Route: 042
     Dates: start: 20090227

REACTIONS (5)
  - BACK PAIN [None]
  - DYSPNOEA [None]
  - FEELING HOT [None]
  - MUSCLE SPASMS [None]
  - PAIN IN EXTREMITY [None]
